FAERS Safety Report 10455442 (Version 1)
Quarter: 2014Q3

REPORT INFORMATION
  Report Type: Spontaneous
  Country: US (occurrence: None)
  Receive Date: 20140915
  Receipt Date: 20140915
  Transmission Date: 20150326
  Serious: No
  Sender: FDA-Public Use
  Company Number: None

PATIENT
  Age: 52 Year
  Sex: Female
  Weight: 70.31 kg

DRUGS (1)
  1. ARESTIN [Suspect]
     Active Substance: MINOCYCLINE HYDROCHLORIDE
     Indication: PERIODONTAL DISEASE
     Dates: start: 20140411, end: 20140509

REACTIONS (4)
  - Toxicity to various agents [None]
  - Contraindication to medical treatment [None]
  - Guttate psoriasis [None]
  - Medication error [None]

NARRATIVE: CASE EVENT DATE: 20140518
